FAERS Safety Report 10409882 (Version 1)
Quarter: 2014Q3

REPORT INFORMATION
  Report Type: Spontaneous
  Country: US (occurrence: US)
  Receive Date: 20140826
  Receipt Date: 20140826
  Transmission Date: 20150326
  Serious: No
  Sender: FDA-Public Use
  Company Number: US-VIVUS-2014V1000384

PATIENT
  Age: 59 Year
  Sex: Male
  Weight: 88.53 kg

DRUGS (2)
  1. NEXIUM [Concomitant]
     Active Substance: ESOMEPRAZOLE MAGNESIUM
  2. STENDRA [Suspect]
     Active Substance: AVANAFIL
     Indication: ERECTILE DYSFUNCTION
     Route: 048
     Dates: start: 201406

REACTIONS (1)
  - Drug ineffective [Unknown]
